FAERS Safety Report 14008494 (Version 2)
Quarter: 2017Q4

REPORT INFORMATION
  Report Type: Spontaneous
  Country: FR (occurrence: FR)
  Receive Date: 20170925
  Receipt Date: 20171013
  Transmission Date: 20180321
  Serious: Yes (Other)
  Sender: FDA-Public Use
  Company Number: FR-MERCK KGAA-2027566

PATIENT
  Age: 61 Year
  Sex: Female

DRUGS (4)
  1. ESTIMA (OXYTOCIN) [Concomitant]
     Active Substance: OXYTOCIN
  2. UVEDOSE (COLECALCIFEROL) [Concomitant]
  3. NOVOTHYROX [Suspect]
     Active Substance: LEVOTHYROXINE SODIUM
     Indication: HYPERTHYROIDISM
     Route: 048
     Dates: start: 2017
  4. ESTRAPATCH (ESTRADIOL) [Concomitant]
     Route: 062

REACTIONS (6)
  - Vertigo [Unknown]
  - Blood thyroid stimulating hormone [Unknown]
  - Insomnia [Unknown]
  - Headache [Unknown]
  - Fatigue [Unknown]
  - Hot flush [Unknown]

NARRATIVE: CASE EVENT DATE: 2017
